FAERS Safety Report 5990153-6 (Version None)
Quarter: 2008Q4

REPORT INFORMATION
  Report Type: 
  Country: None (occurrence: None)
  Receive Date: 20081211
  Receipt Date: 20081126
  Transmission Date: 20090506
  Serious: Yes (Other)
  Sender: FDA-Public Use
  Company Number: PHHY2008NO29834

PATIENT
  Sex: Male
  Weight: 74 kg

DRUGS (4)
  1. ZOMETA [Suspect]
     Indication: PROSTATE CANCER
     Dosage: 4 MG, ONCE/SINGLE
  2. ZOMETA [Suspect]
     Dosage: 4 MG, ONCE/SINGLE
  3. TAXOTERE [Concomitant]
     Dosage: 60 MG WEEKLY
  4. CALCIGRAN [Concomitant]
     Dosage: 2 TABLETS DAILY

REACTIONS (3)
  - BLOOD ALKALINE PHOSPHATASE INCREASED [None]
  - DRUG ADMINISTRATION ERROR [None]
  - HAEMOGLOBIN DECREASED [None]
